FAERS Safety Report 16539823 (Version 2)
Quarter: 2019Q3

REPORT INFORMATION
  Report Type: Spontaneous
  Country: US (occurrence: US)
  Receive Date: 20190708
  Receipt Date: 20190726
  Transmission Date: 20191004
  Serious: Yes (Other)
  Sender: FDA-Public Use
  Company Number: US-PRINSTON PHARMACEUTICAL INC.-2019PRN00645

PATIENT
  Age: 62 Year
  Sex: Female
  Weight: 38.55 kg

DRUGS (11)
  1. LEVETIRACETAM. [Suspect]
     Active Substance: LEVETIRACETAM
     Dosage: 2.5 TABLETS, 1X/DAY IN THE MORNING
     Route: 048
     Dates: start: 20190501, end: 2019
  2. CALCIUM [Concomitant]
     Active Substance: CALCIUM
  3. LEVETIRACETAM. [Suspect]
     Active Substance: LEVETIRACETAM
     Dosage: 1.5 G, 1X/DAY
     Route: 048
     Dates: start: 20190623, end: 20190623
  4. LEVETIRACETAM. [Suspect]
     Active Substance: LEVETIRACETAM
     Dosage: 2 G, 1X/DAY
     Route: 048
     Dates: start: 201904, end: 20190501
  5. LEVETIRACETAM. [Suspect]
     Active Substance: LEVETIRACETAM
     Dosage: 2.5 G, 1X/DAY TOTAL DAILY DOSE IN UNEQUAL DOSES (1.25 G, 0.25 G, AND 1 G)
     Route: 048
     Dates: start: 20190622, end: 20190622
  6. LEVETIRACETAM. [Suspect]
     Active Substance: LEVETIRACETAM
     Indication: SEIZURE
     Dosage: 500 MG, 2X/DAY
     Route: 048
     Dates: start: 201802, end: 201809
  7. LEVETIRACETAM. [Suspect]
     Active Substance: LEVETIRACETAM
     Dosage: 2 TABLETS, 1X/DAY AT NIGHT
     Route: 048
     Dates: start: 20190501, end: 2019
  8. VITAMIN D [Concomitant]
     Active Substance: VITAMIN D NOS
  9. LEVETIRACETAM. [Suspect]
     Active Substance: LEVETIRACETAM
     Dosage: 1 G, 2X/DAY
     Route: 048
     Dates: start: 201809
  10. LEVETIRACETAM. [Suspect]
     Active Substance: LEVETIRACETAM
     Dosage: 2.25 G, 1X/DAY
     Route: 048
     Dates: start: 20190619, end: 20190622
  11. PROLIA [Concomitant]
     Active Substance: DENOSUMAB

REACTIONS (3)
  - Product substitution issue [Recovered/Resolved]
  - Drug ineffective [Recovered/Resolved]
  - Seizure [Recovered/Resolved]

NARRATIVE: CASE EVENT DATE: 201809
